FAERS Safety Report 5515163-4 (Version None)
Quarter: 2007Q4

REPORT INFORMATION
  Report Type: 
  Country: None (occurrence: None)
  Receive Date: 20071113
  Receipt Date: 20070125
  Transmission Date: 20080405
  Serious: No
  Sender: FDA-Public Use
  Company Number: A0637021A

PATIENT
  Age: 84 Year
  Sex: Female

DRUGS (6)
  1. COREG [Suspect]
     Indication: HYPERTENSION
     Dosage: 12.5MG PER DAY
     Route: 048
     Dates: start: 20061001
  2. DIOVAN [Concomitant]
  3. VERPAMIL [Concomitant]
  4. HYDROCHLOROTHIAZIDE [Concomitant]
  5. PEPCID [Concomitant]
  6. SYNTHROID [Concomitant]

REACTIONS (2)
  - HEART RATE DECREASED [None]
  - TENDONITIS [None]
